FAERS Safety Report 8003756-4 (Version None)
Quarter: 2011Q4

REPORT INFORMATION
  Report Type: 
  Country: None (occurrence: None)
  Receive Date: 20111222
  Receipt Date: 20111214
  Transmission Date: 20120403
  Serious: Yes (Other)
  Sender: FDA-Public Use
  Company Number: US-ACTELION-A-US2010-40076

PATIENT

DRUGS (4)
  1. REVATIO [Concomitant]
  2. CALCIUM CHANNEL BLOCKERS [Concomitant]
  3. TRACLEER [Suspect]
     Indication: PULMONARY ARTERIAL HYPERTENSION
     Dosage: 125 MG, BID
     Route: 048
     Dates: start: 20070101
  4. TRACLEER [Suspect]
     Dosage: UNK
     Route: 048
     Dates: start: 20060410

REACTIONS (8)
  - TRANSFUSION [None]
  - ABDOMINAL DISCOMFORT [None]
  - ANAEMIA [None]
  - SINUSITIS [None]
  - ULCER HAEMORRHAGE [None]
  - HAEMOGLOBIN DECREASED [None]
  - ONYCHOMYCOSIS [None]
  - HAEMATOCHEZIA [None]
